FAERS Safety Report 23340037 (Version 3)
Quarter: 2024Q1

REPORT INFORMATION
  Report Type: Spontaneous
  Country: US (occurrence: US)
  Receive Date: 20231227
  Receipt Date: 20240325
  Transmission Date: 20240409
  Serious: No
  Sender: FDA-Public Use
  Company Number: US-BRISTOL-MYERS SQUIBB COMPANY-2023-187310

PATIENT
  Age: 72 Year
  Sex: Female

DRUGS (2)
  1. ORENCIA [Suspect]
     Active Substance: ABATACEPT
     Indication: Product used for unknown indication
     Route: 058
  2. ACETAMINOPHEN [Concomitant]
     Active Substance: ACETAMINOPHEN
     Indication: Product used for unknown indication
     Dosage: 500 OR 650 MG WHEN NEEDED

REACTIONS (1)
  - Viral infection [Not Recovered/Not Resolved]

NARRATIVE: CASE EVENT DATE: 20230101
